FAERS Safety Report 9921481 (Version 3)
Quarter: 2014Q2

REPORT INFORMATION
  Report Type: Spontaneous
  Country: DE (occurrence: DE)
  Receive Date: 20140225
  Receipt Date: 20140506
  Transmission Date: 20141212
  Serious: Yes (Other)
  Sender: FDA-Public Use
  Company Number: PHHY2014DE022711

PATIENT
  Sex: Male

DRUGS (3)
  1. ZOMETA [Suspect]
     Indication: PROSTATE CANCER
     Dosage: UNK UKN, UNK
     Route: 041
     Dates: start: 201309
  2. ZOMETA [Suspect]
     Indication: METASTASES TO LIVER
  3. TRENANTONE [Concomitant]
     Dosage: UNK
     Dates: start: 201308

REACTIONS (2)
  - Osteonecrosis of jaw [Unknown]
  - Exposed bone in jaw [Unknown]
